FAERS Safety Report 5167047-1 (Version None)
Quarter: 2006Q4

REPORT INFORMATION
  Report Type: 
  Country: None (occurrence: None)
  Receive Date: 20061207
  Receipt Date: 20061127
  Transmission Date: 20070319
  Serious: Yes (Death)
  Sender: FDA-Public Use
  Company Number: DE-JNJFOC-20061000004

PATIENT
  Sex: Male
  Weight: 60 kg

DRUGS (4)
  1. DURAGESIC-100 [Suspect]
     Indication: CANCER PAIN
     Dosage: WAS TREATED WITH THREE PATCHES
     Route: 062
  2. NAPROXEN [Concomitant]
     Indication: CANCER PAIN
     Route: 048
     Dates: start: 20050701
  3. MORPHINE [Concomitant]
     Indication: CANCER PAIN
     Route: 048
     Dates: start: 20050701
  4. NEUROCIL [Concomitant]
     Indication: CANCER PAIN
     Route: 048
     Dates: start: 20050701

REACTIONS (1)
  - ACCIDENTAL OVERDOSE [None]
